FAERS Safety Report 9766024 (Version 1)
Quarter: 2013Q4

REPORT INFORMATION
  Report Type: Spontaneous
  Country: US (occurrence: US)
  Receive Date: 20131217
  Receipt Date: 20131217
  Transmission Date: 20140711
  Serious: No
  Sender: FDA-Public Use
  Company Number: US-BIOGENIDEC-2013BI116840

PATIENT
  Age: 66 Year
  Sex: Female

DRUGS (11)
  1. TECFIDERA [Suspect]
     Indication: MULTIPLE SCLEROSIS
     Route: 048
  2. TECFIDERA [Suspect]
     Indication: MULTIPLE SCLEROSIS
     Route: 048
     Dates: start: 201310
  3. ALLEGRA [Concomitant]
  4. BACLOFEN [Concomitant]
  5. BIOTIN [Concomitant]
  6. CALCIUM CARBONATE 500 [Concomitant]
  7. IBUPROFEN [Concomitant]
  8. MAGNESIUM [Concomitant]
  9. NEURONTIN [Concomitant]
  10. PREVACID [Concomitant]
  11. VITAMIN D [Concomitant]

REACTIONS (2)
  - Faeces discoloured [Unknown]
  - Abdominal discomfort [Unknown]
